FAERS Safety Report 8817345 (Version 2)
Quarter: 2013Q2

REPORT INFORMATION
  Report Type: Spontaneous
  Country: JP (occurrence: JP)
  Receive Date: 20121004
  Receipt Date: 20130422
  Transmission Date: 20140414
  Serious: Yes (Hospitalization, Disabling, Other)
  Sender: FDA-Public Use
  Company Number: PHHY2012JP084057

PATIENT
  Age: 19 Year
  Sex: Male

DRUGS (5)
  1. METHOTREXATE [Suspect]
     Indication: JUVENILE IDIOPATHIC ARTHRITIS
     Dosage: 7.5 MG, PER WEEK
  2. REMICADE [Suspect]
     Indication: JUVENILE IDIOPATHIC ARTHRITIS
     Dosage: 100 MG
  3. REMICADE [Suspect]
     Dosage: 200 MG, EVERY 5-6 WEEKS
  4. PREDNISOLONE [Concomitant]
     Indication: JUVENILE IDIOPATHIC ARTHRITIS
     Dosage: 10 MG, PER DAY
  5. PREDNISOLONE [Concomitant]
     Dosage: 2.5 MG, EVERY OTHER DAY

REACTIONS (9)
  - Germ cell cancer [Recovered/Resolved]
  - Chest pain [Unknown]
  - Joint contracture [Unknown]
  - Cushingoid [Unknown]
  - Central obesity [Unknown]
  - Pyrexia [Unknown]
  - Stomatitis [Unknown]
  - Bone marrow failure [Unknown]
  - Arthritis [Unknown]
